FAERS Safety Report 22297327 (Version 1)
Quarter: 2023Q2

REPORT INFORMATION
  Report Type: Spontaneous
  Country: CN (occurrence: CN)
  Receive Date: 20230509
  Receipt Date: 20230509
  Transmission Date: 20230721
  Serious: Yes (Other)
  Sender: FDA-Public Use
  Company Number: CN-BoehringerIngelheim-2023-BI-235067

PATIENT
  Age: 95 Year
  Sex: Female
  Weight: 49 kg

DRUGS (4)
  1. ALTEPLASE [Suspect]
     Active Substance: ALTEPLASE
     Indication: Cerebral infarction
     Route: 042
     Dates: start: 20230417, end: 20230417
  2. ALTEPLASE [Suspect]
     Active Substance: ALTEPLASE
     Route: 042
     Dates: start: 20230417, end: 20230417
  3. STERILE WATER FOR INJECTION [Concomitant]
     Active Substance: WATER
     Indication: Drug therapy
     Route: 042
     Dates: start: 20230417, end: 20230417
  4. STERILE WATER FOR INJECTION [Concomitant]
     Active Substance: WATER
     Route: 042
     Dates: start: 20230417, end: 20230417

REACTIONS (6)
  - Cerebral haemorrhage [Recovering/Resolving]
  - Headache [Recovering/Resolving]
  - Dysarthria [Recovering/Resolving]
  - Cough [Recovering/Resolving]
  - Gait disturbance [Recovering/Resolving]
  - Off label use [Unknown]

NARRATIVE: CASE EVENT DATE: 20230418
